FAERS Safety Report 4672812-0 (Version None)
Quarter: 2005Q2

REPORT INFORMATION
  Report Type: 
  Country: None (occurrence: None)
  Receive Date: 20050523
  Receipt Date: 20050510
  Transmission Date: 20051028
  Serious: Yes (Life-Threatening, Hospitalization)
  Sender: FDA-Public Use
  Company Number: 2005064921

PATIENT
  Age: 18 Year
  Sex: Female

DRUGS (1)
  1. ZELDOX (CAPSULES)  (ZIPRASIDONE) [Suspect]
     Indication: SCHIZOPHRENIA
     Dosage: 80 MG (40 MG, 2 IN 1 D), ORAL
     Route: 048
     Dates: start: 20040914, end: 20041026

REACTIONS (3)
  - ANXIETY [None]
  - DEPRESSION [None]
  - SUICIDAL IDEATION [None]
